FAERS Safety Report 8919162 (Version 2)
Quarter: 2013Q1

REPORT INFORMATION
  Report Type: Spontaneous
  Country: US (occurrence: US)
  Receive Date: 20121121
  Receipt Date: 20130102
  Transmission Date: 20140127
  Serious: Yes (Other)
  Sender: FDA-Public Use
  Company Number: US-BAYER-2012-119280

PATIENT
  Age: 23 Year
  Sex: Female
  Weight: 73 kg

DRUGS (8)
  1. MIRENA [Suspect]
     Indication: CONTRACEPTION
     Dosage: 20 MCG/24HR, CONT
     Route: 015
     Dates: start: 20120813
  2. MIRENA [Suspect]
     Indication: FUNGAL INFECTION
  3. FLINTSTONES [Concomitant]
     Indication: HYPOVITAMINOSIS
     Dosage: 1 TABLET PO
     Dates: start: 20100101, end: 201212
  4. LO/OVRAL [Concomitant]
     Indication: CONTRACEPTION
     Dosage: 1 TABLET PO DAILY
     Dates: start: 20070301, end: 20120806
  5. FLUCONAZOLE [Concomitant]
     Indication: FUNGAL INFECTION
     Dosage: 150 MG, PRN
     Dates: start: 20101214, end: 201212
  6. CLARITIN [Concomitant]
     Indication: DERMATITIS ALLERGIC
     Dosage: 10 MG,PO, DAILY
     Dates: start: 20050101, end: 201212
  7. CLARITIN [Concomitant]
     Indication: SEASONAL ALLERGY
  8. IMMUNOTHERAPY [Concomitant]

REACTIONS (8)
  - Genital haemorrhage [None]
  - Menorrhagia [Recovering/Resolving]
  - Abdominal pain lower [Recovering/Resolving]
  - Menstrual disorder [Recovering/Resolving]
  - Abdominal pain lower [Recovering/Resolving]
  - Coital bleeding [Not Recovered/Not Resolved]
  - Weight increased [Not Recovered/Not Resolved]
  - Vaginal discharge [None]
